FAERS Safety Report 26186523 (Version 1)
Quarter: 2025Q4

REPORT INFORMATION
  Report Type: Spontaneous
  Country: US (occurrence: US)
  Receive Date: 20251222
  Receipt Date: 20251222
  Transmission Date: 20260118
  Serious: Yes (Other)
  Sender: BAYER HEALTHCARE PHARMACEUTICALS INC.
  Company Number: US-BAYER-2025A166430

PATIENT
  Age: 42 Year
  Sex: Male

DRUGS (2)
  1. KOVALTRY [Suspect]
     Active Substance: ANTIHEMOPHILIC FACTOR, HUMAN RECOMBINANT
     Dosage: KOVALTRY 291/1111 IU: INFUSE 1240?TO 1550 UN / 2480 TO 3100 UN
     Route: 042
  2. KOVALTRY [Suspect]
     Active Substance: ANTIHEMOPHILIC FACTOR, HUMAN RECOMBINANT
     Dosage: 1 DF, PRIOR BIOPSY DONE
     Route: 042
     Dates: start: 20251202, end: 20251202

REACTIONS (1)
  - Biopsy [None]

NARRATIVE: CASE EVENT DATE: 20251202
